FAERS Safety Report 16135830 (Version 1)
Quarter: 2019Q1

REPORT INFORMATION
  Report Type: Spontaneous
  Country: US (occurrence: US)
  Receive Date: 20190329
  Receipt Date: 20190329
  Transmission Date: 20190418
  Serious: Yes (Hospitalization)
  Sender: FDA-Public Use
  Company Number: US-TEVA-2019-US-1031046

PATIENT
  Age: 2 Year
  Sex: Female

DRUGS (1)
  1. CYCLOSPORINE. [Suspect]
     Active Substance: CYCLOSPORINE
     Indication: APLASTIC ANAEMIA
     Dosage: DOSAGE- 0.35
     Route: 065
     Dates: start: 201809

REACTIONS (5)
  - Drug ineffective [Unknown]
  - Blood pressure increased [Recovered/Resolved]
  - Product use in unapproved indication [Unknown]
  - Sepsis [Unknown]
  - Drug level decreased [Unknown]
